FAERS Safety Report 12943222 (Version 3)
Quarter: 2016Q4

REPORT INFORMATION
  Report Type: Spontaneous
  Country: US (occurrence: US)
  Receive Date: 20161115
  Receipt Date: 20161206
  Transmission Date: 20170207
  Serious: No
  Sender: FDA-Public Use
  Company Number: US-GLAXOSMITHKLINE-US2016167232

PATIENT
  Age: 79 Year
  Sex: Female

DRUGS (11)
  1. CYCLOBENZAPRINE [Concomitant]
     Active Substance: CYCLOBENZAPRINE
  2. BREO ELLIPTA [Suspect]
     Active Substance: FLUTICASONE FUROATE\VILANTEROL TRIFENATATE
     Indication: CHRONIC OBSTRUCTIVE PULMONARY DISEASE
     Dosage: 1 PUFF(S), QD
     Route: 055
     Dates: start: 20161101, end: 20161117
  3. IPRATROPIUM BROMIDE AND ALBUTEROL SULFATE [Concomitant]
     Active Substance: ALBUTEROL SULFATE\IPRATROPIUM BROMIDE
  4. DILTIAZEM. [Concomitant]
     Active Substance: DILTIAZEM
  5. FOLIC ACID. [Concomitant]
     Active Substance: FOLIC ACID
  6. LORAZEPAM. [Concomitant]
     Active Substance: LORAZEPAM
  7. OXYGEN. [Concomitant]
     Active Substance: OXYGEN
  8. ADVAIR HFA [Suspect]
     Active Substance: FLUTICASONE PROPIONATE\SALMETEROL XINAFOATE
     Indication: PRODUCT USED FOR UNKNOWN INDICATION
     Dosage: UNK, U
  9. DALIRESP [Suspect]
     Active Substance: ROFLUMILAST
     Indication: CHRONIC OBSTRUCTIVE PULMONARY DISEASE
     Dosage: 500 MG, QOD
     Route: 055
     Dates: start: 20161013
  10. VENTOLIN [Concomitant]
     Active Substance: ALBUTEROL SULFATE
  11. TRIAMTERENE. [Concomitant]
     Active Substance: TRIAMTERENE

REACTIONS (14)
  - Tremor [Not Recovered/Not Resolved]
  - Feeling abnormal [Not Recovered/Not Resolved]
  - Heart rate increased [Not Recovered/Not Resolved]
  - Throat tightness [Not Recovered/Not Resolved]
  - Fatigue [Not Recovered/Not Resolved]
  - Heart rate abnormal [Recovering/Resolving]
  - Decreased appetite [Not Recovered/Not Resolved]
  - Off label use [Recovered/Resolved]
  - Adverse drug reaction [Unknown]
  - Asthenia [Not Recovered/Not Resolved]
  - Drug dose omission [Not Recovered/Not Resolved]
  - Drug ineffective [Unknown]
  - Nausea [Not Recovered/Not Resolved]
  - Dyspnoea [Not Recovered/Not Resolved]

NARRATIVE: CASE EVENT DATE: 201611
